FAERS Safety Report 18505164 (Version 2)
Quarter: 2021Q3

REPORT INFORMATION
  Report Type: Spontaneous
  Country: US (occurrence: US)
  Receive Date: 20201116
  Receipt Date: 20210720
  Transmission Date: 20211014
  Serious: No
  Sender: FDA-Public Use
  Company Number: US-AMGEN-USASP2020183928

PATIENT
  Age: 57 Year
  Sex: Female

DRUGS (2)
  1. OTEZLA [Suspect]
     Active Substance: APREMILAST
     Dosage: 30 MILLIGRAM, BID
     Route: 048
     Dates: start: 20210519
  2. OTEZLA [Suspect]
     Active Substance: APREMILAST
     Indication: PSORIATIC ARTHROPATHY
     Dosage: 30 MILLIGRAM, BID
     Route: 048
     Dates: start: 202010

REACTIONS (5)
  - Myalgia [Unknown]
  - Neuralgia [Unknown]
  - Headache [Unknown]
  - Nausea [Unknown]
  - Tinnitus [Unknown]

NARRATIVE: CASE EVENT DATE: 20201111
